FAERS Safety Report 20087207 (Version 1)
Quarter: 2021Q4

REPORT INFORMATION
  Report Type: Spontaneous
  Country: US (occurrence: None)
  Receive Date: 20211118
  Receipt Date: 20211118
  Transmission Date: 20220303
  Serious: Yes (Hospitalization)
  Sender: FDA-Public Use
  Company Number: None

PATIENT
  Age: 49 Year
  Sex: Female

DRUGS (1)
  1. ZIEXTENZO [Suspect]
     Active Substance: PEGFILGRASTIM-BMEZ
     Dosage: OTHER FREQUENCY : ONCE;?
     Route: 058

REACTIONS (2)
  - Bone pain [None]
  - Nausea [None]

NARRATIVE: CASE EVENT DATE: 20210116
